FAERS Safety Report 5916755-0 (Version None)
Quarter: 2008Q4

REPORT INFORMATION
  Report Type: 
  Country: None (occurrence: None)
  Receive Date: 20081013
  Receipt Date: 20080926
  Transmission Date: 20090506
  Serious: Yes (Death, Other)
  Sender: FDA-Public Use
  Company Number: US-BAYER-200834506NA

PATIENT
  Sex: Female

DRUGS (1)
  1. TRASYLOL [Suspect]
     Indication: CORONARY ARTERY BYPASS
     Dates: start: 20050601

REACTIONS (6)
  - DEATH [None]
  - EMOTIONAL DISORDER [None]
  - INJURY [None]
  - PAIN [None]
  - RENAL FAILURE ACUTE [None]
  - UNEVALUABLE EVENT [None]
